FAERS Safety Report 14336724 (Version 2)
Quarter: 2018Q1

REPORT INFORMATION
  Report Type: Spontaneous
  Country: JP (occurrence: JP)
  Receive Date: 20171229
  Receipt Date: 20180125
  Transmission Date: 20180509
  Serious: Yes (Life-Threatening, Hospitalization, Other)
  Sender: FDA-Public Use
  Company Number: JP-GLAXOSMITHKLINE-JP2017JPN195711

PATIENT
  Age: 20 Year
  Sex: Female

DRUGS (3)
  1. LAMICTAL [Suspect]
     Active Substance: LAMOTRIGINE
     Dosage: 25 MG, QD
     Route: 048
     Dates: start: 20171122, end: 20171122
  2. LAMICTAL [Suspect]
     Active Substance: LAMOTRIGINE
     Indication: BIPOLAR II DISORDER
     Dosage: 25 MG, QOD
     Route: 048
     Dates: start: 20171108
  3. DEPAKENE [Suspect]
     Active Substance: VALPROIC ACID
     Indication: BIPOLAR II DISORDER
     Dosage: 400 MG, QD
     Route: 048
     Dates: end: 20171122

REACTIONS (12)
  - Headache [Recovering/Resolving]
  - Erythema of eyelid [Unknown]
  - Toxic epidermal necrolysis [Recovering/Resolving]
  - Drug eruption [Recovering/Resolving]
  - Hepatic function abnormal [Recovering/Resolving]
  - Generalised oedema [Recovering/Resolving]
  - Oral mucosa erosion [Unknown]
  - Generalised erythema [Recovering/Resolving]
  - Lip erosion [Recovering/Resolving]
  - Ocular hyperaemia [Unknown]
  - Platelet count decreased [Recovering/Resolving]
  - Pyrexia [Recovering/Resolving]

NARRATIVE: CASE EVENT DATE: 20171122
